FAERS Safety Report 13923664 (Version 1)
Quarter: 2017Q3

REPORT INFORMATION
  Report Type: Spontaneous
  Country: US (occurrence: US)
  Receive Date: 20170830
  Receipt Date: 20170830
  Transmission Date: 20171127
  Serious: Yes (Hospitalization, Other)
  Sender: FDA-Public Use
  Company Number: None

PATIENT
  Age: 33 Year
  Sex: Female
  Weight: 58.5 kg

DRUGS (6)
  1. SEROQUEL [Concomitant]
     Active Substance: QUETIAPINE FUMARATE
  2. STRATTERA [Suspect]
     Active Substance: ATOMOXETINE HYDROCHLORIDE
     Indication: ATTENTION DEFICIT/HYPERACTIVITY DISORDER
     Route: 048
     Dates: start: 20161219, end: 20170801
  3. SPRINTEC [Concomitant]
     Active Substance: ETHINYL ESTRADIOL\NORGESTIMATE
  4. VITAMIN D [Concomitant]
     Active Substance: CHOLECALCIFEROL
  5. FLAXSEED [Concomitant]
     Active Substance: FLAX SEED
  6. XANAX [Concomitant]
     Active Substance: ALPRAZOLAM

REACTIONS (16)
  - Cold sweat [None]
  - Ear pain [None]
  - Asthenia [None]
  - Urticaria [None]
  - Headache [None]
  - Influenza like illness [None]
  - Chills [None]
  - Migraine [None]
  - Impaired self-care [None]
  - Pyrexia [None]
  - Streptococcus test positive [None]
  - Malaise [None]
  - Loss of personal independence in daily activities [None]
  - Lethargy [None]
  - Abdominal pain upper [None]
  - Asthma [None]

NARRATIVE: CASE EVENT DATE: 20170801
